FAERS Safety Report 19264807 (Version 1)
Quarter: 2021Q2

REPORT INFORMATION
  Report Type: Spontaneous
  Country: US (occurrence: US)
  Receive Date: 20210517
  Receipt Date: 20210517
  Transmission Date: 20210717
  Serious: Yes (Other)
  Sender: FDA-Public Use
  Company Number: US-AUROBINDO-AUR-APL-2021-019000

PATIENT
  Age: 33 Year
  Sex: Female

DRUGS (6)
  1. SOTALOL. [Suspect]
     Active Substance: SOTALOL
     Indication: SUPRAVENTRICULAR TACHYCARDIA
     Dosage: 200 MILLIGRAM, TWO TIMES A DAY
     Route: 065
  2. DIGOXIN. [Suspect]
     Active Substance: DIGOXIN
     Indication: SUPRAVENTRICULAR TACHYCARDIA
     Dosage: UNK
     Route: 065
  3. AMIODARONE HYDROCHLORIDE. [Suspect]
     Active Substance: AMIODARONE HYDROCHLORIDE
     Indication: SUPRAVENTRICULAR TACHYCARDIA
     Dosage: 5 MILLIGRAM
     Route: 065
  4. AMIODARONE HYDROCHLORIDE. [Suspect]
     Active Substance: AMIODARONE HYDROCHLORIDE
     Dosage: 600 MILLIGRAM, ONCE A DAY
     Route: 065
  5. METOPROLOL. [Suspect]
     Active Substance: METOPROLOL
     Indication: SUPRAVENTRICULAR TACHYCARDIA
     Dosage: 100 MILLIGRAM, ONCE A DAY
     Route: 065
  6. FLECAINIDE [Suspect]
     Active Substance: FLECAINIDE
     Indication: SUPRAVENTRICULAR TACHYCARDIA
     Dosage: 150 MILLIGRAM, TWO TIMES A DAY
     Route: 065

REACTIONS (2)
  - Drug ineffective [Unknown]
  - Exposure during pregnancy [Unknown]
